FAERS Safety Report 8839619 (Version 1)
Quarter: 2012Q4

REPORT INFORMATION
  Report Type: 
  Country: US (occurrence: US)
  Receive Date: 20121015
  Receipt Date: 20121015
  Transmission Date: 20130627
  Serious: Yes (Hospitalization)
  Sender: FDA-Public Use
  Company Number: US-BAYER-2012-105421

PATIENT
  Age: 30 Year
  Sex: Female
  Weight: 78.46 kg

DRUGS (6)
  1. YAZ [Suspect]
     Dosage: UNK
     Dates: start: 20090204, end: 20110523
  2. INDOMETHACIN [Concomitant]
     Indication: GOUT
     Dosage: 50 mg, UNK
  3. PREDNISONE [Concomitant]
     Indication: PAIN IN EXTREMITY
  4. PREDNISONE [Concomitant]
     Indication: GOUT
  5. ZOFRAN [Concomitant]
  6. PROTONIX [Concomitant]

REACTIONS (11)
  - Pulmonary embolism [Recovered/Resolved]
  - Deep vein thrombosis [Recovered/Resolved]
  - Chest pain [Recovered/Resolved]
  - Pain in extremity [Recovered/Resolved]
  - Dyspnoea [Recovered/Resolved]
  - Atelectasis [Recovered/Resolved]
  - Joint swelling [Recovered/Resolved]
  - Fear of disease [None]
  - Dizziness [Recovered/Resolved]
  - Stress [None]
  - Anxiety [None]
